FAERS Safety Report 16141101 (Version 8)
Quarter: 2020Q2

REPORT INFORMATION
  Report Type: Spontaneous
  Country: US (occurrence: US)
  Receive Date: 20190401
  Receipt Date: 20200617
  Transmission Date: 20200713
  Serious: Yes (Other)
  Sender: FDA-Public Use
  Company Number: US-PFIZER INC-2019132212

PATIENT
  Age: 44 Year
  Sex: Male

DRUGS (2)
  1. XELJANZ [Suspect]
     Active Substance: TOFACITINIB CITRATE
     Dosage: 5 MG, 2X/DAY
     Route: 048
     Dates: start: 201903
  2. XELJANZ [Suspect]
     Active Substance: TOFACITINIB CITRATE
     Indication: RHEUMATOID ARTHRITIS
     Dosage: 5 MG, 2X/DAY
     Route: 048
     Dates: start: 201902, end: 2019

REACTIONS (10)
  - Liver function test abnormal [Unknown]
  - Blood pressure increased [Recovered/Resolved]
  - Headache [Recovered/Resolved]
  - Laboratory test abnormal [Unknown]
  - Renal function test abnormal [Unknown]
  - Product dose omission [Unknown]
  - Weight increased [Unknown]
  - Cough [Recovering/Resolving]
  - Urinary tract obstruction [Unknown]
  - Muscle rupture [Unknown]

NARRATIVE: CASE EVENT DATE: 2019
